FAERS Safety Report 12142733 (Version 2)
Quarter: 2016Q2

REPORT INFORMATION
  Report Type: Report from Study
  Country: CO (occurrence: CO)
  Receive Date: 20160303
  Receipt Date: 20160419
  Transmission Date: 20160815
  Serious: Yes (Other)
  Sender: FDA-Public Use
  Company Number: PHHY2015CO149038

PATIENT
  Age: 42 Year
  Sex: Female
  Weight: 69 kg

DRUGS (1)
  1. TASIGNA [Suspect]
     Active Substance: NILOTINIB
     Indication: CHRONIC MYELOID LEUKAEMIA
     Dosage: 2 DF OF 150 MG, Q12H (2 IN THE MORNING AND 2 AT NIGHT, EVERY 12 HOURS)
     Route: 048
     Dates: start: 20150914, end: 20151221

REACTIONS (17)
  - Burning sensation [Unknown]
  - Diarrhoea [Recovered/Resolved]
  - Myalgia [Unknown]
  - Renal pain [Unknown]
  - Constipation [Unknown]
  - Increased appetite [Unknown]
  - Poor peripheral circulation [Unknown]
  - Gastric dilatation [Unknown]
  - Pollakiuria [Unknown]
  - Vomiting [Unknown]
  - Abdominal pain [Unknown]
  - Pain in extremity [Unknown]
  - Alopecia [Unknown]
  - Pruritus generalised [Unknown]
  - Splenitis [Recovered/Resolved]
  - Hepatitis [Unknown]
  - Splenomegaly [Unknown]

NARRATIVE: CASE EVENT DATE: 20151019
